FAERS Safety Report 23986230 (Version 4)
Quarter: 2024Q3

REPORT INFORMATION
  Report Type: Spontaneous
  Country: FR (occurrence: FR)
  Receive Date: 20240618
  Receipt Date: 20240705
  Transmission Date: 20241016
  Serious: Yes (Hospitalization, Other)
  Sender: SANOFI AVENTIS
  Company Number: None

PATIENT
  Age: 82 Year
  Sex: Female

DRUGS (3)
  1. HEPARIN [Suspect]
     Active Substance: HEPARIN SODIUM
     Indication: Pulmonary embolism
     Dosage: UNK
     Route: 042
  2. ENOXAPARIN SODIUM [Suspect]
     Active Substance: ENOXAPARIN SODIUM
     Indication: Thrombosis prophylaxis
     Dosage: 40 MG, QD
     Route: 058
  3. PIPERACILLIN AND TAZOBACTAM [Concomitant]
     Active Substance: PIPERACILLIN SODIUM\TAZOBACTAM SODIUM
     Indication: Antibiotic prophylaxis
     Dosage: UNK

REACTIONS (15)
  - Cardiogenic shock [Recovered/Resolved with Sequelae]
  - Hyperlactacidaemia [Recovered/Resolved with Sequelae]
  - Oliguria [Recovered/Resolved with Sequelae]
  - Livedo reticularis [Recovered/Resolved with Sequelae]
  - Depressed level of consciousness [Recovered/Resolved with Sequelae]
  - Hypoperfusion [Recovered/Resolved with Sequelae]
  - Distributive shock [Unknown]
  - Hypovolaemia [Unknown]
  - Hyperthermia [Unknown]
  - Pulmonary embolism [Recovered/Resolved]
  - Heparin-induced thrombocytopenia [Unknown]
  - Adrenal haemorrhage [Unknown]
  - Abdominal pain [Unknown]
  - Adrenal haematoma [Unknown]
  - Adrenal insufficiency [Unknown]
